FAERS Safety Report 8495023-X (Version None)
Quarter: 2012Q3

REPORT INFORMATION
  Report Type: 
  Country: None (occurrence: None)
  Receive Date: 20120709
  Receipt Date: 20120703
  Transmission Date: 20120928
  Serious: Yes (Other)
  Sender: FDA-Public Use
  Company Number: PHHY2012BR048531

PATIENT
  Sex: Male
  Weight: 76 kg

DRUGS (2)
  1. DIOVAN HCT [Suspect]
     Indication: HYPERTENSION
     Dosage: 1 DF (160/5 MG), DAILY
     Route: 048
  2. DIOVAN HCT [Suspect]
     Dosage: UNK
     Dates: start: 20120606

REACTIONS (6)
  - BLOOD PRESSURE INCREASED [None]
  - MALAISE [None]
  - INFLUENZA [None]
  - BLOOD PRESSURE DECREASED [None]
  - PNEUMONIA [None]
  - WHEEZING [None]
